FAERS Safety Report 24728088 (Version 2)
Quarter: 2024Q4

REPORT INFORMATION
  Report Type: Report from Study
  Country: DE (occurrence: DE)
  Receive Date: 20241212
  Receipt Date: 20241218
  Transmission Date: 20250114
  Serious: Yes (Hospitalization)
  Sender: UCB
  Company Number: DE-UCBSA-2024064498

PATIENT
  Sex: Female

DRUGS (18)
  1. CERTOLIZUMAB PEGOL [Suspect]
     Active Substance: CERTOLIZUMAB PEGOL
     Indication: Axial spondyloarthritis
     Dosage: 400 MILLIGRAM, UNK
     Dates: start: 20190218, end: 20190513
  2. CELECOXIB [Concomitant]
     Active Substance: CELECOXIB
     Indication: Product used for unknown indication
     Dosage: 400 MILLIGRAM
     Dates: start: 20190211, end: 20190310
  3. CELECOXIB [Concomitant]
     Active Substance: CELECOXIB
     Dosage: 200 MILLIGRAM
     Dates: start: 20190828
  4. CELECOXIB [Concomitant]
     Active Substance: CELECOXIB
     Dosage: 400 MILLIGRAM
     Dates: start: 201908, end: 20200915
  5. CELECOXIB [Concomitant]
     Active Substance: CELECOXIB
     Dosage: 200 MILLIGRAM
     Dates: start: 20221007, end: 20221021
  6. CELECOXIB [Concomitant]
     Active Substance: CELECOXIB
     Dosage: 400 MILLIGRAM
     Dates: start: 20240207, end: 20240415
  7. ERELZI [Concomitant]
     Active Substance: ETANERCEPT-SZZS
     Indication: Product used for unknown indication
     Dosage: 50 MILLIGRAM
     Dates: start: 20190611, end: 20191204
  8. COSENTYX [Concomitant]
     Active Substance: SECUKINUMAB
     Indication: Product used for unknown indication
     Dosage: 150 MILLIGRAM
     Dates: start: 20191218, end: 20200122
  9. IBUPROFEN [Concomitant]
     Active Substance: IBUPROFEN
     Indication: Product used for unknown indication
     Dosage: 800 MILLIGRAM
     Dates: start: 20180101, end: 20200505
  10. IBUPROFEN [Concomitant]
     Active Substance: IBUPROFEN
     Dosage: 1600 MILLIGRAM
     Dates: start: 20201216, end: 20210115
  11. IBUPROFEN [Concomitant]
     Active Substance: IBUPROFEN
     Dosage: 800 MILLIGRAM
     Dates: start: 20211020, end: 20221006
  12. IBUPROFEN [Concomitant]
     Active Substance: IBUPROFEN
     Dosage: 2400 MILLIGRAM
     Dates: start: 20230620, end: 20240207
  13. IBUPROFEN [Concomitant]
     Active Substance: IBUPROFEN
     Dosage: 800 MILLIGRAM
     Dates: start: 20240515
  14. INFLIXIMAB [Concomitant]
     Active Substance: INFLIXIMAB
     Indication: Product used for unknown indication
     Dosage: 300 MILLIGRAM
     Dates: start: 20200503, end: 20200916
  15. INFLIXIMAB [Concomitant]
     Active Substance: INFLIXIMAB
     Dosage: 300 MILLIGRAM
     Dates: start: 20201230, end: 20210505
  16. INFLIXIMAB [Concomitant]
     Active Substance: INFLIXIMAB
     Dosage: 300 MILLIGRAM
     Dates: start: 20210811, end: 20210922
  17. INFLIXIMAB [Concomitant]
     Active Substance: INFLIXIMAB
     Dosage: 300 MILLIGRAM
     Dates: start: 20220126, end: 20230419
  18. INFLIXIMAB [Concomitant]
     Active Substance: INFLIXIMAB
     Dosage: 300 MILLIGRAM
     Dates: start: 20230830

REACTIONS (2)
  - Osteoarthritis [Unknown]
  - Herpes zoster [Unknown]

NARRATIVE: CASE EVENT DATE: 20230724
